FAERS Safety Report 21320586 (Version 1)
Quarter: 2022Q3

REPORT INFORMATION
  Report Type: Spontaneous
  Country: FR (occurrence: FR)
  Receive Date: 20220912
  Receipt Date: 20220912
  Transmission Date: 20221027
  Serious: Yes (Hospitalization)
  Sender: FDA-Public Use
  Company Number: None

PATIENT
  Age: 64 Year
  Sex: Female
  Weight: 45 kg

DRUGS (37)
  1. CARBOPLATIN [Suspect]
     Active Substance: CARBOPLATIN
     Indication: Neuroendocrine carcinoma
     Dosage: STRENGTH: 10 MG/ML,
     Dates: start: 20210909, end: 20210909
  2. PACLITAXEL [Suspect]
     Active Substance: PACLITAXEL
     Indication: Neuroendocrine carcinoma
     Dosage: STRENGTH: 6MG/ML
     Dates: start: 20210818, end: 20210818
  3. SKENAN [Suspect]
     Active Substance: MORPHINE SULFATE
     Indication: Pain
     Dates: start: 20220119
  4. PREDNISONE [Suspect]
     Active Substance: PREDNISONE
     Indication: Neuroendocrine tumour of the lung
     Dates: start: 20220527, end: 20220606
  5. MORPHINE SULFATE [Suspect]
     Active Substance: MORPHINE SULFATE
     Indication: Pain
     Dosage: STRENGTH: 5MG, EVERY 4 HOURS AS REQUIRED
     Dates: start: 20220119
  6. PREDNISONE [Suspect]
     Active Substance: PREDNISONE
     Indication: Neuroendocrine tumour of the lung
     Dates: start: 20220622
  7. PREDNISONE [Suspect]
     Active Substance: PREDNISONE
     Indication: Neuroendocrine tumour of the lung
     Dates: start: 202111, end: 202112
  8. PREDNISONE [Suspect]
     Active Substance: PREDNISONE
     Indication: Neuroendocrine tumour of the lung
     Dates: start: 20220608, end: 20220622
  9. PREDNISONE [Suspect]
     Active Substance: PREDNISONE
     Indication: Neuroendocrine tumour of the lung
     Dates: start: 20220113, end: 20220423
  10. PREDNISONE [Suspect]
     Active Substance: PREDNISONE
     Indication: Neuroendocrine tumour of the lung
     Dates: start: 20220506, end: 20220509
  11. PACLITAXEL [Suspect]
     Active Substance: PACLITAXEL
     Indication: Neuroendocrine carcinoma
     Dosage: STRENGTH: 6MG/ML
     Dates: start: 20210411, end: 20210411
  12. PACLITAXEL [Suspect]
     Active Substance: PACLITAXEL
     Indication: Neuroendocrine carcinoma
     Dosage: STRENGTH: 6MG/ML
     Dates: start: 20210404, end: 20210404
  13. PACLITAXEL [Suspect]
     Active Substance: PACLITAXEL
     Indication: Neuroendocrine carcinoma
     Dosage: STRENGTH: 6MG/ML
     Dates: start: 20210618, end: 20210618
  14. PACLITAXEL [Suspect]
     Active Substance: PACLITAXEL
     Indication: Neuroendocrine carcinoma
     Dosage: STRENGTH: 6MG/ML
     Dates: start: 20210506, end: 20210506
  15. PACLITAXEL [Suspect]
     Active Substance: PACLITAXEL
     Indication: Neuroendocrine carcinoma
     Dosage: STRENGTH: 6MG/ML
     Dates: start: 20210713, end: 20210713
  16. PACLITAXEL [Suspect]
     Active Substance: PACLITAXEL
     Indication: Neuroendocrine carcinoma
     Dosage: STRENGTH: 6MG/ML
     Dates: start: 20210803, end: 20210803
  17. PACLITAXEL [Suspect]
     Active Substance: PACLITAXEL
     Indication: Neuroendocrine carcinoma
     Dosage: STRENGTH: 6MG/ML
     Dates: start: 20210622, end: 20220622
  18. PACLITAXEL [Suspect]
     Active Substance: PACLITAXEL
     Indication: Neuroendocrine carcinoma
     Dosage: STRENGTH: 6MG/ML
     Dates: start: 20210513, end: 20210513
  19. PACLITAXEL [Suspect]
     Active Substance: PACLITAXEL
     Indication: Neuroendocrine carcinoma
     Dosage: STRENGTH: 6MG/ML
     Dates: start: 20210909, end: 20210909
  20. PACLITAXEL [Suspect]
     Active Substance: PACLITAXEL
     Indication: Neuroendocrine carcinoma
     Dosage: STRENGTH: 6MG/ML
     Dates: start: 20210615, end: 20210615
  21. PACLITAXEL [Suspect]
     Active Substance: PACLITAXEL
     Indication: Neuroendocrine carcinoma
     Dosage: STRENGTH: 6MG/ML
     Dates: start: 20210916, end: 20210916
  22. PACLITAXEL [Suspect]
     Active Substance: PACLITAXEL
     Indication: Neuroendocrine carcinoma
     Dosage: STRENGTH: 6MG/ML
     Dates: start: 20210923, end: 20210923
  23. PACLITAXEL [Suspect]
     Active Substance: PACLITAXEL
     Indication: Neuroendocrine carcinoma
     Dosage: STRENGTH: 6MG/ML
     Dates: start: 20210422, end: 20210422
  24. PACLITAXEL [Suspect]
     Active Substance: PACLITAXEL
     Indication: Neuroendocrine carcinoma
     Dosage: STRENGTH: 6MG/ML
     Dates: start: 20210623, end: 20210623
  25. CARBOPLATIN [Suspect]
     Active Substance: CARBOPLATIN
     Indication: Neuroendocrine carcinoma
     Dosage: STRENGTH: 10 MG/ML,
     Dates: start: 20210608, end: 20210608
  26. CARBOPLATIN [Suspect]
     Active Substance: CARBOPLATIN
     Indication: Neuroendocrine carcinoma
     Dosage: STRENGTH: 10 MG/ML,
     Dates: start: 20210318, end: 20210318
  27. CARBOPLATIN [Suspect]
     Active Substance: CARBOPLATIN
     Indication: Neuroendocrine carcinoma
     Dosage: STRENGTH: 10 MG/ML,
     Dates: start: 20220215, end: 20220215
  28. CARBOPLATIN [Suspect]
     Active Substance: CARBOPLATIN
     Indication: Neuroendocrine carcinoma
     Dosage: STRENGTH: 10 MG/ML,
     Dates: start: 20210803, end: 20210803
  29. CARBOPLATIN [Suspect]
     Active Substance: CARBOPLATIN
     Indication: Neuroendocrine carcinoma
     Dosage: STRENGTH: 10 MG/ML,
     Dates: start: 20210506, end: 20210506
  30. CARBOPLATIN [Suspect]
     Active Substance: CARBOPLATIN
     Indication: Neuroendocrine carcinoma
     Dosage: STRENGTH: 10 MG/ML,
     Dates: start: 20220117, end: 20220117
  31. CARBOPLATIN [Suspect]
     Active Substance: CARBOPLATIN
     Indication: Neuroendocrine carcinoma
     Dosage: STRENGTH: 10 MG/ML,
     Dates: start: 20210531, end: 20210531
  32. CARBOPLATIN [Suspect]
     Active Substance: CARBOPLATIN
     Indication: Neuroendocrine carcinoma
     Dosage: STRENGTH: 10 MG/ML,
     Dates: start: 20220404, end: 20220404
  33. CARBOPLATIN [Suspect]
     Active Substance: CARBOPLATIN
     Indication: Neuroendocrine carcinoma
     Dosage: STRENGTH: 10 MG/ML,
     Dates: start: 20210622, end: 20210622
  34. CARBOPLATIN [Suspect]
     Active Substance: CARBOPLATIN
     Indication: Neuroendocrine carcinoma
     Dosage: STRENGTH: 10 MG/ML,
     Dates: start: 20210713, end: 20210713
  35. CARBOPLATIN [Suspect]
     Active Substance: CARBOPLATIN
     Indication: Neuroendocrine carcinoma
     Dosage: STRENGTH: 10 MG/ML,
     Dates: start: 20210505, end: 20210505
  36. CARBOPLATIN [Suspect]
     Active Substance: CARBOPLATIN
     Indication: Neuroendocrine carcinoma
     Dosage: STRENGTH: 10 MG/ML,
     Dates: start: 20210412, end: 20210412
  37. CARBOPLATIN [Suspect]
     Active Substance: CARBOPLATIN
     Indication: Neuroendocrine carcinoma
     Dosage: STRENGTH: 10 MG/ML,
     Dates: start: 20210803, end: 20210803

REACTIONS (1)
  - Pancreatitis acute [Not Recovered/Not Resolved]

NARRATIVE: CASE EVENT DATE: 20220712
